FAERS Safety Report 11093717 (Version 4)
Quarter: 2016Q1

REPORT INFORMATION
  Report Type: Spontaneous
  Country: US (occurrence: US)
  Receive Date: 20150506
  Receipt Date: 20160121
  Transmission Date: 20160525
  Serious: Yes (Hospitalization, Disabling, Other)
  Sender: FDA-Public Use
  Company Number: US-009507513-1204USA00503

PATIENT
  Sex: Female

DRUGS (4)
  1. FOSAMAX [Suspect]
     Active Substance: ALENDRONATE SODIUM
     Dosage: UNK
     Route: 048
     Dates: start: 2000, end: 2004
  2. PRAVACHOL [Concomitant]
     Active Substance: PRAVASTATIN SODIUM
     Indication: BLOOD CHOLESTEROL INCREASED
     Dosage: UNK
     Route: 065
     Dates: start: 2000
  3. FOSAMAX [Suspect]
     Active Substance: ALENDRONATE SODIUM
     Indication: OSTEOPOROSIS
     Dosage: 70 MG, QW
     Route: 048
     Dates: start: 20040211, end: 20110512
  4. ALENDRONATE SODIUM. [Suspect]
     Active Substance: ALENDRONATE SODIUM
     Indication: OSTEOPOROSIS
     Dosage: 70 MG, UNK
     Route: 048
     Dates: start: 200402, end: 201101

REACTIONS (20)
  - Type 2 diabetes mellitus [Unknown]
  - Abscess [Unknown]
  - Bone disorder [Unknown]
  - Tooth extraction [Unknown]
  - Bursitis [Unknown]
  - Foot fracture [Unknown]
  - Low turnover osteopathy [Not Recovered/Not Resolved]
  - Foot fracture [Unknown]
  - Cleft palate repair [Unknown]
  - Tooth infection [Unknown]
  - Femur fracture [Recovered/Resolved with Sequelae]
  - Tooth extraction [Unknown]
  - Femur fracture [Unknown]
  - Blood potassium decreased [Unknown]
  - Anaemia postoperative [Unknown]
  - Sequestrectomy [Unknown]
  - Osteoporosis [Not Recovered/Not Resolved]
  - Osteomyelitis [Not Recovered/Not Resolved]
  - Scar pain [Recovered/Resolved]
  - Foot fracture [Unknown]

NARRATIVE: CASE EVENT DATE: 2004
